FAERS Safety Report 7605308-4 (Version None)
Quarter: 2011Q3

REPORT INFORMATION
  Report Type: 
  Country: None (occurrence: None)
  Receive Date: 20110712
  Receipt Date: 20110712
  Transmission Date: 20111222
  Serious: No
  Sender: FDA-Public Use
  Company Number: None

PATIENT
  Age: 63 Year
  Sex: Male
  Weight: 121.4 kg

DRUGS (2)
  1. IRBESARTAN [Suspect]
     Indication: HYPERTENSION
     Dosage: 300 MG EVERY DAY PO
     Route: 048
     Dates: start: 20101021, end: 20110618
  2. SPIRONOLACTONE [Suspect]
     Indication: HYPERTENSION
     Dosage: 25 MG EVERY DAY PO
     Route: 048
     Dates: start: 20100407, end: 20110618

REACTIONS (3)
  - BLOOD CREATININE INCREASED [None]
  - HAEMATOCHEZIA [None]
  - HYPERKALAEMIA [None]
